FAERS Safety Report 23020039 (Version 1)
Quarter: 2023Q4

REPORT INFORMATION
  Report Type: Spontaneous
  Country: LT (occurrence: LT)
  Receive Date: 20231003
  Receipt Date: 20231003
  Transmission Date: 20240110
  Serious: Yes (Other)
  Sender: FDA-Public Use
  Company Number: LT-BAYER-2023A138165

PATIENT
  Age: 57 Year
  Sex: Male

DRUGS (3)
  1. STIVARGA [Suspect]
     Active Substance: REGORAFENIB
     Indication: Colorectal cancer metastatic
     Dosage: 160 MG, QD (1XD 3 WEEKS, AFTER THAT 1 WEEK PAUSE, COURSES EVERY  4 WEEKS)
     Route: 048
     Dates: start: 20211125, end: 202203
  2. STIVARGA [Suspect]
     Active Substance: REGORAFENIB
     Indication: Colorectal cancer metastatic
     Dosage: 120 MG, QD (1 PER DAY)
     Route: 048
     Dates: start: 202203, end: 20220819
  3. STIVARGA [Suspect]
     Active Substance: REGORAFENIB
     Indication: Colorectal cancer metastatic
     Dosage: 80 MG, QD
     Route: 048
     Dates: start: 20220819, end: 20230206

REACTIONS (3)
  - Metastases to lung [None]
  - Metastases to liver [None]
  - Disease progression [None]

NARRATIVE: CASE EVENT DATE: 20230206
